FAERS Safety Report 9255825 (Version 1)
Quarter: 2013Q2

REPORT INFORMATION
  Report Type: Spontaneous
  Country: ES (occurrence: ES)
  Receive Date: 20130425
  Receipt Date: 20130425
  Transmission Date: 20140414
  Serious: Yes (Other)
  Sender: FDA-Public Use
  Company Number: ES-ELI_LILLY_AND_COMPANY-ES201304004927

PATIENT
  Age: 6 Year
  Sex: Male

DRUGS (1)
  1. SOMATROPIN [Suspect]
     Indication: FOETAL GROWTH RESTRICTION
     Dosage: UNK
     Dates: start: 201104

REACTIONS (1)
  - Craniopharyngioma [Unknown]
